FAERS Safety Report 5317399-4 (Version None)
Quarter: 2007Q2

REPORT INFORMATION
  Report Type: 
  Country: None (occurrence: None)
  Receive Date: 20070504
  Receipt Date: 20070425
  Transmission Date: 20071010
  Serious: Yes (Hospitalization, Other)
  Sender: FDA-Public Use
  Company Number: DE-ABBOTT-04P-062-0283086-00

PATIENT
  Sex: Female

DRUGS (3)
  1. ERGENYL TABLETS [Suspect]
     Indication: BIPOLAR DISORDER
     Route: 048
     Dates: end: 20040101
  2. METAMIZOLE [Suspect]
     Indication: PYREXIA
     Route: 048
     Dates: end: 20040101
  3. METAMIZOLE [Suspect]
     Indication: INFECTION

REACTIONS (11)
  - BLISTER [None]
  - DISSEMINATED INTRAVASCULAR COAGULATION [None]
  - ERYTHEMA [None]
  - LEUKOCYTOCLASTIC VASCULITIS [None]
  - NAIL DISORDER [None]
  - NECROSIS [None]
  - RENAL FAILURE [None]
  - SEPSIS [None]
  - THROMBOSIS [None]
  - TOXIC EPIDERMAL NECROLYSIS [None]
  - URTICARIA [None]
